FAERS Safety Report 16246175 (Version 6)
Quarter: 2019Q4

REPORT INFORMATION
  Report Type: Spontaneous
  Country: JP (occurrence: JP)
  Receive Date: 20190426
  Receipt Date: 20191007
  Transmission Date: 20200122
  Serious: Yes (Death, Hospitalization)
  Sender: FDA-Public Use
  Company Number: JP-ASTRAZENECA-2019SE61637

PATIENT
  Age: 70 Year
  Sex: Male
  Weight: 65 kg

DRUGS (8)
  1. ONOACT [Concomitant]
     Active Substance: LANDIOLOL HYDROCHLORIDE
     Indication: ATRIAL FIBRILLATION
     Dosage: 60.0MG UNKNOWN
     Route: 042
     Dates: start: 20190315, end: 20190409
  2. NEXIUM [Suspect]
     Active Substance: ESOMEPRAZOLE MAGNESIUM
     Indication: OESOPHAGEAL CARCINOMA
     Route: 048
     Dates: start: 20190407, end: 20190409
  3. PROBUCOL [Concomitant]
     Active Substance: PROBUCOL
     Dosage: DOSE UNKNOWN
     Route: 065
  4. LEVODOPA [Concomitant]
     Active Substance: LEVODOPA
     Dosage: DOSE UNKNOWN
     Route: 065
  5. ELASPOL [Concomitant]
     Active Substance: SIVELESTAT SODIUM
     Indication: OESOPHAGEAL CARCINOMA
     Route: 042
     Dates: start: 20190327, end: 20190409
  6. DIPRIVAN [Concomitant]
     Active Substance: PROPOFOL
     Indication: OESOPHAGEAL CARCINOMA
     Dosage: 70.0ML UNKNOWN
     Route: 042
     Dates: start: 20190315, end: 20190411
  7. MAINTATE [Concomitant]
     Active Substance: BISOPROLOL FUMARATE
     Indication: ATRIAL FIBRILLATION
     Route: 048
     Dates: start: 20190405, end: 20190515
  8. MEROPEN [Suspect]
     Active Substance: MEROPENEM
     Indication: OESOPHAGEAL CARCINOMA
     Route: 042
     Dates: start: 20190328, end: 20190409

REACTIONS (4)
  - Herpes zoster [Not Recovered/Not Resolved]
  - Interstitial lung disease [Fatal]
  - Cardiac failure [Not Recovered/Not Resolved]
  - Off label use [Unknown]

NARRATIVE: CASE EVENT DATE: 20190409
